FAERS Safety Report 5205797-9 (Version None)
Quarter: 2007Q1

REPORT INFORMATION
  Report Type: 
  Country: None (occurrence: None)
  Receive Date: 20070111
  Receipt Date: 20070104
  Transmission Date: 20070707
  Serious: Yes (Life-Threatening)
  Sender: FDA-Public Use
  Company Number: CN-ROCHE-477382

PATIENT
  Age: 24 Month
  Sex: Male
  Weight: 13 kg

DRUGS (3)
  1. ROCEPHIN [Suspect]
     Dosage: FORM REPORTED AS VIAL.
     Route: 042
     Dates: start: 20070101, end: 20070103
  2. BRICANYL [Concomitant]
  3. AMBROXOL HYDROCHLORIDE [Concomitant]

REACTIONS (1)
  - HAEMOLYSIS [None]
